FAERS Safety Report 11610931 (Version 7)
Quarter: 2017Q2

REPORT INFORMATION
  Report Type: Spontaneous
  Country: US (occurrence: US)
  Receive Date: 20151008
  Receipt Date: 20170614
  Transmission Date: 20170829
  Serious: Yes (Hospitalization, Other)
  Sender: FDA-Public Use
  Company Number: US-PFIZER INC-2015320801

PATIENT
  Age: 66 Year
  Sex: Male
  Weight: 60.77 kg

DRUGS (7)
  1. SUTENT [Suspect]
     Active Substance: SUNITINIB MALATE
     Dosage: 12.5 MG, CYCLIC
     Dates: start: 20170105
  2. SUTENT [Suspect]
     Active Substance: SUNITINIB MALATE
     Dosage: 37.5 MG, CYCLIC (12.5 MG, 3 CAPS DAILY FOR 4 WEEKS ON AND 2 WEEKS OFF)
     Route: 048
     Dates: start: 20150524
  3. SUTENT [Suspect]
     Active Substance: SUNITINIB MALATE
     Dosage: 37.5 MG, CYCLIC (QD X4 WEEKS OFF 2 WEEKS)
     Route: 048
     Dates: start: 20160524
  4. SUTENT [Suspect]
     Active Substance: SUNITINIB MALATE
     Dosage: 37.5 MG, CYCLIC(DAILY FOR 4 WEEKS, OFF FOR 2 WEEKS)
     Route: 048
     Dates: start: 20150524, end: 20170425
  5. SUTENT [Suspect]
     Active Substance: SUNITINIB MALATE
     Indication: GASTROINTESTINAL STROMAL TUMOUR
     Dosage: 12.5 MG, 3X/DAY
     Route: 048
     Dates: start: 20150524
  6. SUTENT [Suspect]
     Active Substance: SUNITINIB MALATE
     Dosage: 37.5 MG, CYCLIC (D 1-28 Q 42 DAYS)
     Route: 048
     Dates: start: 20150524
  7. SUTENT [Suspect]
     Active Substance: SUNITINIB MALATE
     Dosage: 37.5 MG, CYCLIC,(DAY 1-28 Q 42 DAYS)
     Route: 048
     Dates: start: 20150524

REACTIONS (13)
  - Gout [Unknown]
  - Cerebrovascular accident [Unknown]
  - Expired product administered [Unknown]
  - Skin discolouration [Unknown]
  - Nail discolouration [Unknown]
  - Dysphagia [Unknown]
  - Blood count abnormal [Unknown]
  - Memory impairment [Not Recovered/Not Resolved]
  - Thrombosis [Unknown]
  - Oedema [Unknown]
  - Peripheral swelling [Unknown]
  - Myocardial infarction [Unknown]
  - Drug dose omission [Unknown]

NARRATIVE: CASE EVENT DATE: 201612
